FAERS Safety Report 19477581 (Version 1)
Quarter: 2021Q2

REPORT INFORMATION
  Report Type: Report from Study
  Country: CA (occurrence: CA)
  Receive Date: 20210630
  Receipt Date: 20210630
  Transmission Date: 20210717
  Serious: Yes (Other)
  Sender: FDA-Public Use
  Company Number: CA-JNJFOC-20210646018

PATIENT
  Age: 40 Year
  Sex: Female
  Weight: 71 kg

DRUGS (3)
  1. PFIZER?BIONTECH COVID?19 VACCINE [Suspect]
     Active Substance: TOZINAMERAN
     Indication: COVID-19 PROPHYLAXIS
     Route: 065
  2. STELARA [Suspect]
     Active Substance: USTEKINUMAB
  3. STELARA [Suspect]
     Active Substance: USTEKINUMAB
     Indication: CROHN^S DISEASE
     Route: 058
     Dates: start: 20200826

REACTIONS (9)
  - Abdominal pain [Not Recovered/Not Resolved]
  - Oral candidiasis [Recovering/Resolving]
  - Myalgia [Recovered/Resolved]
  - Road traffic accident [Unknown]
  - Diarrhoea [Recovered/Resolved]
  - Back disorder [Not Recovered/Not Resolved]
  - Malaise [Unknown]
  - Fungal rhinitis [Unknown]
  - Joint noise [Unknown]

NARRATIVE: CASE EVENT DATE: 2021
